FAERS Safety Report 16802003 (Version 3)
Quarter: 2019Q4

REPORT INFORMATION
  Report Type: Spontaneous
  Country: KR (occurrence: KR)
  Receive Date: 20190912
  Receipt Date: 20191105
  Transmission Date: 20200122
  Serious: Yes (Other)
  Sender: FDA-Public Use
  Company Number: PHHY2019KR210500

PATIENT
  Sex: Male

DRUGS (1)
  1. COSENTYX [Suspect]
     Active Substance: SECUKINUMAB
     Indication: PSORIASIS
     Dosage: UNK
     Route: 065
     Dates: start: 201901, end: 2019

REACTIONS (1)
  - Squamous cell carcinoma [Unknown]
